FAERS Safety Report 14273009 (Version 1)
Quarter: 2017Q4

REPORT INFORMATION
  Report Type: Spontaneous
  Country: GB (occurrence: GB)
  Receive Date: 20171211
  Receipt Date: 20171211
  Transmission Date: 20180321
  Serious: Yes (Hospitalization, Other)
  Sender: FDA-Public Use
  Company Number: GB-OTSUKA-2015_014324

PATIENT
  Age: 44 Year
  Sex: Female

DRUGS (18)
  1. LORAZEPAM. [Suspect]
     Active Substance: LORAZEPAM
     Indication: PRODUCT USED FOR UNKNOWN INDICATION
     Dosage: 4 MG, UNK
     Route: 030
     Dates: start: 20150401, end: 20150402
  2. CLONAZEPAM. [Suspect]
     Active Substance: CLONAZEPAM
     Indication: PRODUCT USED FOR UNKNOWN INDICATION
     Dosage: 1 MG, TID
     Route: 048
     Dates: start: 20150329, end: 20150413
  3. OLANZAPINE. [Suspect]
     Active Substance: OLANZAPINE
     Indication: PRODUCT USED FOR UNKNOWN INDICATION
     Dosage: 1 DF, PRN
     Route: 048
     Dates: start: 20150330, end: 20150412
  4. LORAZEPAM. [Suspect]
     Active Substance: LORAZEPAM
     Dosage: 1 DF, PRN
     Route: 030
     Dates: start: 20150330, end: 20150412
  5. ABILIFY [Suspect]
     Active Substance: ARIPIPRAZOLE
     Indication: MANIA
     Dosage: 10 MG, QD
     Route: 048
     Dates: start: 20150330
  6. CLOPIXOL-ACUPHASE [Suspect]
     Active Substance: ZUCLOPENTHIXOL
     Dosage: 100 MG, UNK
     Route: 030
     Dates: start: 20150401, end: 20150402
  7. CLOPIXOL-ACUPHASE [Suspect]
     Active Substance: ZUCLOPENTHIXOL
     Dosage: 150 MG, QD
     Route: 030
     Dates: start: 20150412, end: 20150412
  8. LORAZEPAM. [Suspect]
     Active Substance: LORAZEPAM
     Dosage: 1 DF, UNK
     Route: 030
     Dates: start: 20150330, end: 20150412
  9. ABILIFY [Suspect]
     Active Substance: ARIPIPRAZOLE
     Indication: BIPOLAR I DISORDER
     Dosage: 15 MG, QD
     Route: 048
     Dates: start: 20150407
  10. ABILIFY [Suspect]
     Active Substance: ARIPIPRAZOLE
     Dosage: 20 MG, QD
     Route: 048
     Dates: start: 20150409, end: 20150413
  11. LORAZEPAM. [Suspect]
     Active Substance: LORAZEPAM
     Indication: PRODUCT USED FOR UNKNOWN INDICATION
     Dosage: 4 MG, UNK
     Route: 030
     Dates: start: 20150401, end: 20150402
  12. LORAZEPAM. [Suspect]
     Active Substance: LORAZEPAM
     Dosage: 1 DF, UNK
     Route: 048
     Dates: start: 20150330, end: 20150412
  13. LORAZEPAM. [Suspect]
     Active Substance: LORAZEPAM
     Dosage: 1 DF, PRN
     Route: 048
     Dates: start: 20150330, end: 20150412
  14. ABILIFY [Suspect]
     Active Substance: ARIPIPRAZOLE
     Indication: BIPOLAR DISORDER
     Dosage: 15 MG, QD
     Route: 048
     Dates: start: 20150130, end: 20150413
  15. CLOPIXOL-ACUPHASE [Suspect]
     Active Substance: ZUCLOPENTHIXOL
     Indication: MANIA
     Dosage: 50 MG, UNK
     Route: 030
     Dates: start: 20150331, end: 20150331
  16. OLANZAPINE. [Suspect]
     Active Substance: OLANZAPINE
     Indication: PRODUCT USED FOR UNKNOWN INDICATION
     Dosage: 1 DF, PRN
     Route: 048
     Dates: start: 20150330, end: 20150412
  17. CLONAZEPAM. [Suspect]
     Active Substance: CLONAZEPAM
     Indication: PRODUCT USED FOR UNKNOWN INDICATION
     Dosage: 1 MG, TID
     Route: 048
     Dates: start: 20150329, end: 20150413
  18. CLOPIXOL-ACUPHASE [Suspect]
     Active Substance: ZUCLOPENTHIXOL
     Dosage: 100 MG, UNK
     Route: 030
     Dates: start: 20150413, end: 20150413

REACTIONS (3)
  - Neutropenia [Recovered/Resolved]
  - Prescribed overdose [Recovered/Resolved]
  - Medication error [Recovered/Resolved]

NARRATIVE: CASE EVENT DATE: 20150414
